FAERS Safety Report 14862068 (Version 2)
Quarter: 2018Q3

REPORT INFORMATION
  Report Type: Spontaneous
  Country: US (occurrence: US)
  Receive Date: 20180508
  Receipt Date: 20180813
  Transmission Date: 20181010
  Serious: No
  Sender: FDA-Public Use
  Company Number: US-CELLTRION INC.-2018US017730

PATIENT

DRUGS (4)
  1. INFLECTRA [Suspect]
     Active Substance: INFLIXIMAB-DYYB
     Indication: RHEUMATOID ARTHRITIS
     Dosage: UNK
     Route: 065
     Dates: start: 20171206, end: 20171206
  2. INFLECTRA [Suspect]
     Active Substance: INFLIXIMAB-DYYB
     Dosage: 3 DF (VIALS); 300 MG
     Route: 065
     Dates: start: 20180416, end: 20180416
  3. INFLECTRA [Suspect]
     Active Substance: INFLIXIMAB-DYYB
     Dosage: 200 MG, EVERY 8 WEEKS
     Route: 065
  4. INFLECTRA [Suspect]
     Active Substance: INFLIXIMAB-DYYB
     Dosage: 300 MG INFUSION ADMINISTERED OVER 2 HOURS EVERY 6 WEEKS
     Route: 042
     Dates: start: 20170829, end: 20170829

REACTIONS (4)
  - Drug dose omission [Unknown]
  - Therapeutic response decreased [Unknown]
  - Drug prescribing error [Unknown]
  - Prescribed underdose [Unknown]
